FAERS Safety Report 9639434 (Version 6)
Quarter: 2014Q2

REPORT INFORMATION
  Report Type: Report from Study
  Country: US (occurrence: US)
  Receive Date: 20131022
  Receipt Date: 20140626
  Transmission Date: 20141212
  Serious: Yes (Hospitalization, Other)
  Sender: FDA-Public Use
  Company Number: US-ROCHE-1209537

PATIENT
  Age: 28 Year
  Sex: Female
  Weight: 49.03 kg

DRUGS (23)
  1. OMALIZUMAB [Suspect]
     Indication: ASTHMA
     Dosage: DATE OF MOST RECENT DOSE: 22/MAR/2013
     Route: 058
     Dates: start: 20130304
  2. OMALIZUMAB [Suspect]
     Indication: ECZEMA
     Route: 058
     Dates: start: 20130322
  3. OMALIZUMAB [Suspect]
     Indication: DERMATITIS
     Route: 058
     Dates: start: 20130502
  4. OMALIZUMAB [Suspect]
     Route: 058
     Dates: start: 20130523, end: 20130709
  5. OMALIZUMAB [Suspect]
     Route: 058
     Dates: start: 20130606
  6. OMALIZUMAB [Suspect]
     Route: 058
     Dates: start: 20130620
  7. OMALIZUMAB [Suspect]
     Route: 058
     Dates: start: 20130709
  8. HYDROXYZINE [Concomitant]
     Indication: DERMATITIS ALLERGIC
  9. ADVAIR [Concomitant]
     Indication: ASTHMA
  10. PROAIR (UNITED STATES) [Concomitant]
     Indication: ASTHMA
  11. CLOBETASOL [Concomitant]
     Indication: DERMATITIS ALLERGIC
     Route: 061
  12. BENADRYL (UNITED STATES) [Concomitant]
     Indication: HYPERSENSITIVITY
     Dosage: AS REQUIRED
     Route: 048
  13. ZYRTEC [Concomitant]
     Indication: HYPERSENSITIVITY
     Dosage: AS REQUIRED
     Route: 048
  14. SPIRULINA [Concomitant]
     Route: 048
  15. TYLENOL [Concomitant]
     Indication: PAIN
     Dosage: AS REQUIRED
     Route: 048
  16. TYLENOL [Concomitant]
     Indication: DERMATITIS ALLERGIC
  17. IBUPROFEN [Concomitant]
     Indication: PAIN
  18. DOXEPIN [Concomitant]
  19. FISH OIL [Concomitant]
     Dosage: DAILY
     Route: 048
  20. PREDNISONE [Concomitant]
     Indication: DERMATITIS ALLERGIC
     Dosage: AS REQUIRED
     Route: 048
  21. VICODIN [Concomitant]
     Indication: PAIN
  22. DOC-Q-LACE [Concomitant]
  23. OMEGA 3 [Concomitant]

REACTIONS (4)
  - Prolonged labour [Recovered/Resolved]
  - Eczema [Recovered/Resolved]
  - Staphylococcal infection [Unknown]
  - Exposure during pregnancy [Unknown]
